FAERS Safety Report 7990231-6 (Version None)
Quarter: 2011Q4

REPORT INFORMATION
  Report Type: 
  Country: None (occurrence: None)
  Receive Date: 20111219
  Receipt Date: 20111207
  Transmission Date: 20120403
  Serious: Yes (Death, Hospitalization)
  Sender: FDA-Public Use
  Company Number: JP-MPIJNJ-2011-06284

PATIENT

DRUGS (2)
  1. DEXAMETHASONE [Concomitant]
     Indication: MULTIPLE MYELOMA
  2. VELCADE [Suspect]
     Indication: MULTIPLE MYELOMA
     Dosage: UNK
     Route: 065

REACTIONS (2)
  - DEATH [None]
  - INTERSTITIAL LUNG DISEASE [None]
